FAERS Safety Report 8818078 (Version 1)
Quarter: 2012Q4

REPORT INFORMATION
  Report Type: 
  Country: GB (occurrence: GB)
  Receive Date: 20121001
  Receipt Date: 20121001
  Transmission Date: 20130627
  Serious: Yes (Other)
  Sender: FDA-Public Use
  Company Number: GB-TEVA-360581ISR

PATIENT
  Age: 48 Year
  Sex: Female
  Weight: 79.82 kg

DRUGS (1)
  1. TAMOXIFEN [Suspect]
     Indication: NEOPLASM MALIGNANT
     Route: 048
     Dates: start: 20100301, end: 20120901

REACTIONS (3)
  - Arthralgia [Recovered/Resolved]
  - Trigger finger [Recovered/Resolved]
  - Gastritis [Recovered/Resolved]
